FAERS Safety Report 8143130-3 (Version None)
Quarter: 2012Q1

REPORT INFORMATION
  Report Type: 
  Country: None (occurrence: None)
  Receive Date: 20120217
  Receipt Date: 20120210
  Transmission Date: 20120608
  Serious: No
  Sender: FDA-Public Use
  Company Number: US-PFIZER INC-2012017098

PATIENT
  Sex: Female
  Weight: 65.76 kg

DRUGS (6)
  1. ACETAMINOPHEN [Suspect]
     Dosage: UNK
  2. IBUPROFEN (ADVIL) [Suspect]
     Indication: OSTEOARTHRITIS
  3. IBUPROFEN (ADVIL) [Suspect]
     Indication: PAIN
     Dosage: UNK, AS NEEDED
     Dates: start: 20111201
  4. CRESTOR [Concomitant]
     Dosage: 20 MG, DAILY
  5. ACTONEL [Concomitant]
     Dosage: UNK, MONTHLY
  6. IBUPROFEN (ADVIL) [Suspect]
     Indication: NEUROMYOPATHY

REACTIONS (3)
  - CIRCUMSTANCE OR INFORMATION CAPABLE OF LEADING TO MEDICATION ERROR [None]
  - DRUG INEFFECTIVE [None]
  - HEADACHE [None]
